FAERS Safety Report 10027035 (Version 1)
Quarter: 2014Q1

REPORT INFORMATION
  Report Type: Spontaneous
  Country: IT (occurrence: IT)
  Receive Date: 20140321
  Receipt Date: 20140321
  Transmission Date: 20141002
  Serious: Yes (Other)
  Sender: FDA-Public Use
  Company Number: PHHY2014IT031499

PATIENT
  Age: 20 Year
  Sex: Female

DRUGS (1)
  1. ACZ885 [Suspect]
     Indication: BEHCET^S SYNDROME
     Dosage: 150 MG,EVERY 8 WEEKS
     Route: 058

REACTIONS (1)
  - Deep vein thrombosis [Recovered/Resolved]
